FAERS Safety Report 22985253 (Version 2)
Quarter: 2023Q4

REPORT INFORMATION
  Report Type: Spontaneous
  Country: JP (occurrence: JP)
  Receive Date: 20230926
  Receipt Date: 20231030
  Transmission Date: 20240110
  Serious: Yes (Other)
  Sender: FDA-Public Use
  Company Number: None

PATIENT
  Age: 72 Year
  Sex: Female

DRUGS (7)
  1. BOTOX [Suspect]
     Active Substance: ONABOTULINUMTOXINA
     Indication: Muscle spasticity
     Dosage: TIME INTERVAL: AS NECESSARY: 500 IU
     Route: 065
     Dates: start: 20230623, end: 20230623
  2. BOTOX [Suspect]
     Active Substance: ONABOTULINUMTOXINA
     Indication: Muscle spasticity
     Dosage: TIME INTERVAL: AS NECESSARY
     Route: 065
  3. CALCIUM CARBONATE\CHOLECALCIFEROL\MAGNESIUM CARBONATE [Concomitant]
     Active Substance: CALCIUM CARBONATE\CHOLECALCIFEROL\MAGNESIUM CARBONATE
     Indication: Hypocalcaemia
     Dosage: UNK,BID
     Dates: start: 2009
  4. TOPIRAMATE [Concomitant]
     Active Substance: TOPIRAMATE
     Indication: Seizure
     Dosage: 50 MG,BID
     Dates: start: 2009
  5. MOVICOL [Concomitant]
     Active Substance: POLYETHYLENE GLYCOL 3350\POTASSIUM CHLORIDE\SODIUM BICARBONATE\SODIUM CHLORIDE
     Indication: Constipation
     Dosage: UNK, 2 SACHETS A DAY
     Dates: start: 2019
  6. DENOSUMAB [Concomitant]
     Active Substance: DENOSUMAB
     Indication: Osteoporosis
     Dosage: 60 MG, SUBCUTANEOUS INJECTION
     Route: 058
     Dates: start: 202303, end: 202303
  7. DENOSUMAB [Concomitant]
     Active Substance: DENOSUMAB
     Indication: Osteoporosis
     Dosage: 60 MG, SUBCUTANEOUS INJECTION
     Route: 058
     Dates: start: 202309, end: 202309

REACTIONS (1)
  - Dysphagia [Not Recovered/Not Resolved]

NARRATIVE: CASE EVENT DATE: 20230601
